FAERS Safety Report 4352583-8 (Version None)
Quarter: 2004Q2

REPORT INFORMATION
  Report Type: 
  Country: None (occurrence: None)
  Receive Date: 20040420
  Receipt Date: 20040219
  Transmission Date: 20050107
  Serious: No
  Sender: FDA-Public Use
  Company Number: 2004199650US

PATIENT
  Sex: Female

DRUGS (1)
  1. SOMAVERT [Suspect]
     Indication: ACROMEGALY

REACTIONS (5)
  - APPLICATION SITE WARMTH [None]
  - ERYTHEMA [None]
  - HYPERSENSITIVITY [None]
  - OEDEMA PERIPHERAL [None]
  - PAIN IN EXTREMITY [None]
